FAERS Safety Report 11461875 (Version 1)
Quarter: 2015Q3

REPORT INFORMATION
  Report Type: Spontaneous
  Country: US (occurrence: US)
  Receive Date: 20150831
  Receipt Date: 20150831
  Transmission Date: 20151125
  Serious: No
  Sender: FDA-Public Use
  Company Number: US-ELI_LILLY_AND_COMPANY-US201009001806

PATIENT
  Sex: Female

DRUGS (12)
  1. ADVAIR HFA [Concomitant]
     Active Substance: FLUTICASONE PROPIONATE\SALMETEROL XINAFOATE
  2. LYRICA [Concomitant]
     Active Substance: PREGABALIN
     Dosage: 75 MG, 2/D
  3. OXYBUTIN [Concomitant]
     Active Substance: OXYBUTYNIN
     Dosage: 5 MG, 2/D
  4. ESTROGEN [Concomitant]
     Active Substance: ESTRONE\SUS SCROFA OVARY
     Dosage: UNK, DAILY (1/D)
  5. HALCION [Concomitant]
     Active Substance: TRIAZOLAM
     Dosage: 0.25 MG, EACH EVENING
  6. NASOCORT [Concomitant]
     Active Substance: BUDESONIDE
  7. XANAX [Concomitant]
     Active Substance: ALPRAZOLAM
     Dosage: 0.5 MG, 4/D
  8. PROAIR HFA [Concomitant]
     Active Substance: ALBUTEROL SULFATE
  9. CYMBALTA [Suspect]
     Active Substance: DULOXETINE HYDROCHLORIDE
     Indication: DEPRESSION
     Dosage: 120 MG, DAILY (1/D)
  10. CYMBALTA [Suspect]
     Active Substance: DULOXETINE HYDROCHLORIDE
     Dosage: 120 MG, DAILY (1/D)
  11. CYMBALTA [Suspect]
     Active Substance: DULOXETINE HYDROCHLORIDE
     Dosage: 120 MG, DAILY (1/D)
  12. VICODIN [Concomitant]
     Active Substance: ACETAMINOPHEN\HYDROCODONE BITARTRATE

REACTIONS (10)
  - Suicidal ideation [Unknown]
  - Drug withdrawal syndrome [Unknown]
  - Feeling jittery [Unknown]
  - Fatigue [Unknown]
  - Confusional state [Unknown]
  - Formication [Unknown]
  - Feeling abnormal [Unknown]
  - Disturbance in attention [Unknown]
  - Pain [Not Recovered/Not Resolved]
  - Restlessness [Unknown]
